FAERS Safety Report 6968782-2 (Version None)
Quarter: 2010Q3

REPORT INFORMATION
  Report Type: 
  Country: None (occurrence: None)
  Receive Date: 20100907
  Receipt Date: 20100825
  Transmission Date: 20110219
  Serious: Yes (Hospitalization)
  Sender: FDA-Public Use
  Company Number: PHHY2010CH56296

PATIENT
  Sex: Female

DRUGS (5)
  1. ZOLEDRONIC [Suspect]
     Indication: OSTEOPOROSIS
     Dosage: UNK
     Dates: start: 20090828
  2. LISIPRIL [Concomitant]
  3. ASPIRIN [Concomitant]
  4. REMERON [Concomitant]
  5. VITAMIN D [Concomitant]

REACTIONS (1)
  - OSTEONECROSIS [None]
